FAERS Safety Report 22182931 (Version 2)
Quarter: 2023Q2

REPORT INFORMATION
  Report Type: Spontaneous
  Country: US (occurrence: US)
  Receive Date: 20230406
  Receipt Date: 20230425
  Transmission Date: 20230721
  Serious: No
  Sender: FDA-Public Use
  Company Number: US-ALLERGAN-2302221US

PATIENT
  Sex: Female
  Weight: 61.234 kg

DRUGS (1)
  1. QULIPTA [Suspect]
     Active Substance: ATOGEPANT
     Indication: Migraine
     Dosage: 60 MG, QD
     Route: 048
     Dates: start: 2022, end: 202301

REACTIONS (6)
  - Night sweats [Recovering/Resolving]
  - Hormone level abnormal [Recovering/Resolving]
  - Faeces hard [Unknown]
  - Gastrointestinal motility disorder [Unknown]
  - Abdominal distension [Unknown]
  - Constipation [Recovering/Resolving]

NARRATIVE: CASE EVENT DATE: 20220101
